FAERS Safety Report 20147457 (Version 1)
Quarter: 2021Q4

REPORT INFORMATION
  Report Type: Spontaneous
  Country: US (occurrence: US)
  Receive Date: 20211203
  Receipt Date: 20211203
  Transmission Date: 20220303
  Serious: No
  Sender: FDA-Public Use
  Company Number: US-SA-SAC20211129001293

PATIENT
  Age: 67 Year
  Sex: Female

DRUGS (2)
  1. DUPIXENT [Suspect]
     Active Substance: DUPILUMAB
     Indication: Dermatitis atopic
     Dosage: FREQUENCY - INJ 300MG 1Y SQ Q 2 WS DOSE - 300MG/2ML PFS 2X2 ML
     Route: 058
     Dates: start: 202107
  2. DUPIXENT [Suspect]
     Active Substance: DUPILUMAB
     Dosage: 300MG

REACTIONS (1)
  - Rash [Unknown]

NARRATIVE: CASE EVENT DATE: 20210101
